FAERS Safety Report 6016585-8 (Version None)
Quarter: 2008Q4

REPORT INFORMATION
  Report Type: 
  Country: None (occurrence: None)
  Receive Date: 20081222
  Receipt Date: 20081210
  Transmission Date: 20090506
  Serious: Yes (Other)
  Sender: FDA-Public Use
  Company Number: PHHY2008BE31607

PATIENT
  Sex: Female

DRUGS (5)
  1. RASILEZ [Suspect]
     Indication: HYPERTENSION
     Dosage: 150 MG
     Dates: start: 20081009
  2. RASILEZ [Suspect]
     Dosage: 300 MG
     Dates: start: 20081023, end: 20081101
  3. ZESTRIL [Concomitant]
  4. DILTIAZEM HCL [Concomitant]
  5. ASAFLOW [Concomitant]

REACTIONS (3)
  - BLOOD CREATININE INCREASED [None]
  - CATARACT [None]
  - RENAL FAILURE [None]
